FAERS Safety Report 8296249-0 (Version None)
Quarter: 2012Q2

REPORT INFORMATION
  Report Type: 
  Country: None (occurrence: None)
  Receive Date: 20120418
  Receipt Date: 20120412
  Transmission Date: 20120825
  Serious: Yes (Death, Hospitalization)
  Sender: FDA-Public Use
  Company Number: FR-CELGENEUS-056-50794-12040716

PATIENT
  Age: 75 Year
  Sex: Male

DRUGS (4)
  1. FORZA [Concomitant]
     Route: 065
  2. METFORMIN HCL [Concomitant]
     Route: 065
  3. NEXIUM [Concomitant]
     Route: 065
  4. VIDAZA [Suspect]
     Route: 050
     Dates: start: 20120402

REACTIONS (6)
  - MYALGIA [None]
  - DEATH [None]
  - DYSPNOEA [None]
  - HYPERURICAEMIA [None]
  - MUSCULAR WEAKNESS [None]
  - NEUTROPHIL COUNT DECREASED [None]
